FAERS Safety Report 10852305 (Version 1)
Quarter: 2015Q1

REPORT INFORMATION
  Report Type: Spontaneous
  Country: US (occurrence: US)
  Receive Date: 20150222
  Receipt Date: 20150222
  Transmission Date: 20150721
  Serious: No
  Sender: FDA-Public Use
  Company Number: US-ALLERGAN-1426455US

PATIENT
  Age: 51 Year
  Sex: Male

DRUGS (18)
  1. TOLTERODINE [Concomitant]
     Active Substance: TOLTERODINE
  2. DICLOFENAC [Concomitant]
     Active Substance: DICLOFENAC
  3. TERBINAFINE [Concomitant]
     Active Substance: TERBINAFINE
  4. ZOLPIDEM [Concomitant]
     Active Substance: ZOLPIDEM\ZOLPIDEM TARTRATE
  5. PROTONIX [Concomitant]
     Active Substance: PANTOPRAZOLE SODIUM
  6. VIAGRA [Concomitant]
     Active Substance: SILDENAFIL CITRATE
     Dosage: UNK UNK, PRN
  7. PREGABALIN. [Concomitant]
     Active Substance: PREGABALIN
  8. SUMATRIPTAN. [Concomitant]
     Active Substance: SUMATRIPTAN
  9. BOTOX [Suspect]
     Active Substance: ONABOTULINUMTOXINA
     Indication: MIGRAINE
     Dosage: 155 UNITS, SINGLE
     Route: 030
     Dates: start: 20141119, end: 20141119
  10. VENLAFAXINE [Concomitant]
     Active Substance: VENLAFAXINE HYDROCHLORIDE
  11. OXYCODONE [Concomitant]
     Active Substance: OXYCODONE
  12. PRAZOSIN [Concomitant]
     Active Substance: PRAZOSIN
  13. RISPERIDON [Concomitant]
     Active Substance: RISPERIDONE
  14. TAMSULOSIN [Concomitant]
     Active Substance: TAMSULOSIN
  15. TOPAMAX [Concomitant]
     Active Substance: TOPIRAMATE
  16. METHOCARBAMOL. [Concomitant]
     Active Substance: METHOCARBAMOL
  17. SIMETHICONE [Concomitant]
     Active Substance: DIMETHICONE\SILICON DIOXIDE\SIMETHICONE
  18. ATORVASTATIN [Concomitant]
     Active Substance: ATORVASTATIN

REACTIONS (2)
  - Pruritus [Recovered/Resolved]
  - Scab [Not Recovered/Not Resolved]
